FAERS Safety Report 14035077 (Version 1)
Quarter: 2017Q4

REPORT INFORMATION
  Report Type: Spontaneous
  Country: US (occurrence: US)
  Receive Date: 20171003
  Receipt Date: 20171003
  Transmission Date: 20180321
  Serious: No
  Sender: FDA-Public Use
  Company Number: US-GALDERMA-US17007414

PATIENT
  Sex: 0

DRUGS (1)
  1. SOOLANTRA [Suspect]
     Active Substance: IVERMECTIN
     Indication: PRODUCT USED FOR UNKNOWN INDICATION
     Dosage: 1 %
     Route: 061

REACTIONS (3)
  - Dry eye [Recovered/Resolved]
  - Sleep disorder [Not Recovered/Not Resolved]
  - Eye pruritus [Recovered/Resolved]
